FAERS Safety Report 20393628 (Version 1)
Quarter: 2022Q1

REPORT INFORMATION
  Report Type: Spontaneous
  Country: US (occurrence: US)
  Receive Date: 20220128
  Receipt Date: 20220128
  Transmission Date: 20220424
  Serious: Yes (Death, Hospitalization, Other)
  Sender: FDA-Public Use
  Company Number: US-GILEAD-2022-0567355

PATIENT
  Age: 5 Decade
  Sex: Male

DRUGS (4)
  1. REMDESIVIR [Suspect]
     Active Substance: REMDESIVIR
     Indication: COVID-19
     Dosage: UNK
     Route: 065
     Dates: start: 2021
  2. AMBISOME [Suspect]
     Active Substance: AMPHOTERICIN B
     Indication: Eye infection fungal
     Dosage: UNK
     Route: 065
     Dates: start: 2021
  3. COVID-19 CONVALESCENT PLASMA [Concomitant]
     Active Substance: COVID-19 CONVALESCENT PLASMA
     Dosage: UNK
     Dates: start: 2021
  4. METHYLPREDNISOLONE [Concomitant]
     Active Substance: METHYLPREDNISOLONE
     Dosage: 2 MG/KG
     Dates: start: 2021

REACTIONS (3)
  - Acute kidney injury [Unknown]
  - Eye infection fungal [Unknown]
  - Death [Fatal]

NARRATIVE: CASE EVENT DATE: 20210801
